FAERS Safety Report 16255149 (Version 1)
Quarter: 2019Q2

REPORT INFORMATION
  Report Type: Spontaneous
  Country: US (occurrence: US)
  Receive Date: 20190429
  Receipt Date: 20190429
  Transmission Date: 20190711
  Serious: Yes (Disabling)
  Sender: FDA-Public Use
  Company Number: None

PATIENT
  Age: 76 Year
  Sex: Female
  Weight: 71.1 kg

DRUGS (2)
  1. IPRATROPIUM BROMIDE AND ALBUTEROL SULFATE [Suspect]
     Active Substance: ALBUTEROL SULFATE\IPRATROPIUM BROMIDE
     Indication: BRONCHIOLITIS
     Dosage: ?          QUANTITY:1 INHALATION(S);?
     Route: 055
  2. IPRATROPIUM BROMIDE AND ALBUTEROL SULFATE [Suspect]
     Active Substance: ALBUTEROL SULFATE\IPRATROPIUM BROMIDE
     Indication: BRONCHITIS VIRAL
     Dosage: ?          QUANTITY:1 INHALATION(S);?
     Route: 055

REACTIONS (6)
  - Epistaxis [None]
  - Confusional state [None]
  - Drug interaction [None]
  - Haemorrhage [None]
  - Nausea [None]
  - Injection site bruising [None]

NARRATIVE: CASE EVENT DATE: 20190426
